FAERS Safety Report 22805573 (Version 2)
Quarter: 2024Q3

REPORT INFORMATION
  Report Type: Report from Study
  Country: JP (occurrence: JP)
  Receive Date: 20230809
  Receipt Date: 20240927
  Transmission Date: 20241017
  Serious: Yes (Death, Life-Threatening, Other)
  Sender: JAZZ
  Company Number: JP-JAZZ PHARMACEUTICALS-2023-JP-016833

PATIENT
  Age: 35 Year
  Sex: Male
  Weight: 45 kg

DRUGS (2)
  1. DEFITELIO [Suspect]
     Active Substance: DEFIBROTIDE SODIUM
     Indication: Venoocclusive liver disease
     Dosage: 25 MILLIGRAM/KILOGRAM/24 HOURS
     Route: 042
     Dates: start: 20201127, end: 20201208
  2. POLYETHYLENE GLYCOLS [Concomitant]
     Active Substance: POLYETHYLENE GLYCOLS
     Dosage: UNK
     Dates: start: 20201127, end: 20201127

REACTIONS (2)
  - Acute myeloid leukaemia [Fatal]
  - Red blood cell schistocytes [Not Recovered/Not Resolved]

NARRATIVE: CASE EVENT DATE: 20201130
